FAERS Safety Report 23093961 (Version 4)
Quarter: 2023Q4

REPORT INFORMATION
  Report Type: Report from Study
  Country: ES (occurrence: ES)
  Receive Date: 20231023
  Receipt Date: 20231101
  Transmission Date: 20240110
  Serious: Yes (Other)
  Sender: FDA-Public Use
  Company Number: ES-GENMAB-2023-01943

PATIENT
  Age: 74 Year
  Sex: Male
  Weight: 80 kg

DRUGS (21)
  1. EPCORITAMAB [Suspect]
     Active Substance: EPCORITAMAB
     Indication: Follicular lymphoma
     Dosage: 48 MG C1 (STEP-UP), CYCLES 2 - 3 (WEEKLY) AND C4-12 (EVERY 4 WEEKS) PER PROTOCOL., EVERY 1 WEEKS
     Route: 058
     Dates: start: 20230906
  2. RITUXIMAB [Suspect]
     Active Substance: RITUXIMAB
     Indication: Follicular lymphoma
     Dosage: 686.25 MG, EVERY 1 WEEKS
     Route: 042
     Dates: start: 20230906
  3. LENALIDOMIDE [Suspect]
     Active Substance: LENALIDOMIDE
     Indication: Follicular lymphoma
     Dosage: 10 MG DAY 1-21, EVERY 1 DAYS
     Route: 048
     Dates: start: 20230906, end: 20231017
  4. ROSUVASTATIN CALCIUM [Concomitant]
     Active Substance: ROSUVASTATIN CALCIUM
     Indication: Blood cholesterol
     Dosage: 20 MG, EVERY 24 HOURS
     Dates: start: 19980617
  5. AMLODIPINE MALEATE [Concomitant]
     Active Substance: AMLODIPINE MALEATE
     Indication: Hypertension
     Dosage: 10 MG, EVERY 24 HOURS
     Dates: start: 19990611
  6. VALSARTAN [Concomitant]
     Active Substance: VALSARTAN
     Indication: Hypertension
     Dosage: 320 MG, EVERY 24 HOURS
     Dates: start: 19990611
  7. HYDROCHLOROTHIAZIDE SAR [Concomitant]
     Indication: Hypertension
     Dosage: 25 MG, EVERY 24 HOURS
     Dates: start: 19990611
  8. IMIDAPRIL [Concomitant]
     Active Substance: IMIDAPRIL
     Indication: Hypertension
     Dosage: 10 MG, EVERY 24 HOURS
     Dates: start: 19990611, end: 20231004
  9. DAPAGLIFLOZIN [Concomitant]
     Active Substance: DAPAGLIFLOZIN
     Indication: Diabetes mellitus
     Dosage: 5 MG, 2/DAYS
     Dates: start: 20000306
  10. METFORMIN HYDROCHLORIDE [Concomitant]
     Active Substance: METFORMIN HYDROCHLORIDE
     Indication: Diabetes mellitus
     Dosage: 850 MG, 2/DAYS
     Dates: start: 20000306
  11. LANTUS [Concomitant]
     Active Substance: INSULIN GLARGINE
     Indication: Diabetes mellitus
     Dosage: 23 IU, EVERY 24 HOURS
     Dates: start: 20000306
  12. TENOFOVIR DISOPROXIL FUMARATE [Concomitant]
     Active Substance: TENOFOVIR DISOPROXIL FUMARATE
     Indication: Liver disorder
     Dosage: 245 MG, EVERY 24 HOURS
     Dates: start: 20191112
  13. FILGRASTIM [Concomitant]
     Active Substance: FILGRASTIM
     Indication: Neutropenia
     Dosage: 1 VIAL, ONCE
     Dates: start: 20231011, end: 20231011
  14. FILGRASTIM [Concomitant]
     Active Substance: FILGRASTIM
     Dosage: 1 VIAL, ONCE
     Dates: start: 20231014, end: 20231014
  15. DEXAMETHASONE ACETATE [Concomitant]
     Active Substance: DEXAMETHASONE ACETATE
     Indication: Prophylaxis
     Dosage: 16 MG ONCE
     Dates: start: 20230906, end: 20230923
  16. ACETAMINOPHEN [Concomitant]
     Active Substance: ACETAMINOPHEN
     Indication: Premedication
     Dosage: 650 MG, EVERY 24 HOURS
     Dates: start: 20230913, end: 20230916
  17. ACETAMINOPHEN [Concomitant]
     Active Substance: ACETAMINOPHEN
     Dosage: 650 MG, EVERY 24 HOURS
     Dates: start: 20230920, end: 20230923
  18. ACETAMINOPHEN [Concomitant]
     Active Substance: ACETAMINOPHEN
     Dosage: 650 MG, EVERY 24 HOURS
     Dates: start: 20230927, end: 20230930
  19. DEXCHLORPHENIRAMINE [DEXCHLORPHENIRAMINE MALEATE] [Concomitant]
     Indication: Premedication
     Dosage: 2 MG, EVERY 24 HOURS
     Dates: start: 20230913, end: 20230916
  20. DEXCHLORPHENIRAMINE [DEXCHLORPHENIRAMINE MALEATE] [Concomitant]
     Dosage: 2 MG, EVERY 24 HOURS
     Dates: start: 20230920, end: 20231023
  21. DEXCHLORPHENIRAMINE [DEXCHLORPHENIRAMINE MALEATE] [Concomitant]
     Dosage: 2 MG, EVERY 24 HOURS
     Dates: start: 20230927, end: 20230930

REACTIONS (1)
  - Neutropenia [Recovered/Resolved]

NARRATIVE: CASE EVENT DATE: 20231018
